FAERS Safety Report 6186625-4 (Version None)
Quarter: 2009Q2

REPORT INFORMATION
  Report Type: 
  Country: None (occurrence: None)
  Receive Date: 20090512
  Receipt Date: 20090427
  Transmission Date: 20091009
  Serious: Yes (Other)
  Sender: FDA-Public Use
  Company Number: CA-PFIZER INC-2008063151

PATIENT
  Age: 49 Year

DRUGS (4)
  1. CHAMPIX [Suspect]
     Dosage: 0.5 MG, 2X/DAY
     Route: 048
     Dates: start: 20080101
  2. CLONAZEPAM [Concomitant]
     Dosage: 0.5 MG, 3X/DAY AS NEEDED
  3. ADVAIR DISKUS 100/50 [Concomitant]
     Dosage: 250 UG, 2X/DAY
  4. SALBUTAMOL [Concomitant]
     Dosage: 100 MG, AS NEEDED

REACTIONS (13)
  - ANOREXIA [None]
  - ANXIETY [None]
  - CHOKING [None]
  - CONSTIPATION [None]
  - DIZZINESS [None]
  - DYSPNOEA [None]
  - HAEMOPTYSIS [None]
  - INCREASED UPPER AIRWAY SECRETION [None]
  - INFLUENZA LIKE ILLNESS [None]
  - NAUSEA [None]
  - PANIC REACTION [None]
  - PRESYNCOPE [None]
  - RESPIRATORY DISTRESS [None]
